FAERS Safety Report 4317761-2 (Version None)
Quarter: 2004Q1

REPORT INFORMATION
  Report Type: 
  Country: None (occurrence: None)
  Receive Date: 20040315
  Receipt Date: 20030616
  Transmission Date: 20041129
  Serious: Yes (Hospitalization)
  Sender: FDA-Public Use
  Company Number: WAES 0306FRA00054

PATIENT
  Age: 52 Year
  Sex: Male

DRUGS (4)
  1. AMIODARONE [Concomitant]
     Route: 048
  2. COZAAR [Suspect]
     Indication: HYPERTENSION
     Route: 048
     Dates: end: 20030524
  3. NIFLUMIC ACID [Concomitant]
     Dates: end: 20030524
  4. PRAVASTATIN SODIUM [Suspect]
     Indication: DYSLIPIDAEMIA
     Route: 048
     Dates: end: 20030524

REACTIONS (2)
  - RENAL FAILURE ACUTE [None]
  - RHABDOMYOLYSIS [None]
